FAERS Safety Report 9608485 (Version 3)
Quarter: 2013Q4

REPORT INFORMATION
  Report Type: Spontaneous
  Country: US (occurrence: US)
  Receive Date: 20131009
  Receipt Date: 20131023
  Transmission Date: 20140711
  Serious: Yes (Other)
  Sender: FDA-Public Use
  Company Number: US-PFIZER INC-2013285006

PATIENT
  Age: 83 Year
  Sex: Male

DRUGS (1)
  1. LATANOPROST [Suspect]
     Indication: GLAUCOMA
     Dosage: 2.5 ML, 1 DROP IN EACH EYE ONCE DAILY
     Route: 047
     Dates: start: 2012

REACTIONS (2)
  - Intraocular pressure increased [Unknown]
  - Incorrect product storage [Unknown]
